FAERS Safety Report 23663801 (Version 1)
Quarter: 2024Q1

REPORT INFORMATION
  Report Type: Spontaneous
  Country: PT (occurrence: PT)
  Receive Date: 20240322
  Receipt Date: 20240322
  Transmission Date: 20240410
  Serious: Yes (Other)
  Sender: FDA-Public Use
  Company Number: None

PATIENT
  Age: 80 Year
  Sex: Male

DRUGS (7)
  1. PIPERACILLIN AND TAZOBACTAM [Suspect]
     Active Substance: PIPERACILLIN SODIUM\TAZOBACTAM SODIUM
     Indication: Product used for unknown indication
     Dosage: 4,5 GR 06 /06H?FORM OF ADMIN: POWDER FOR SOLUTION FOR INFUSION?ROUTE: INTRAVENOUS( NOT OTHERWISE SPE
     Dates: start: 20240308, end: 20240309
  2. Metoclopramide 10mg/2ml Solution for injection IM/IV 10 MG 08/08H [Concomitant]
     Indication: Product used for unknown indication
  3. METAMIZOLE [Concomitant]
     Active Substance: METAMIZOLE
     Indication: Product used for unknown indication
  4. Fluoxetine 20 mg capsule Oral once a day [Concomitant]
     Indication: Product used for unknown indication
  5. enoxaparin 40mg/0,4 ml Solution for injection syringe subcutaneous 40 [Concomitant]
     Indication: Product used for unknown indication
  6. Fluoxetine 20 mg capsule Oral once a day, L [Concomitant]
     Indication: Product used for unknown indication
  7. Lorazepam 2,5 mg tablet Oral once a day [Concomitant]
     Indication: Product used for unknown indication

REACTIONS (4)
  - Headache [Unknown]
  - Pruritus [Unknown]
  - Rash [Unknown]
  - Chest discomfort [Unknown]

NARRATIVE: CASE EVENT DATE: 20240309
